FAERS Safety Report 5253819-1 (Version None)
Quarter: 2007Q1

REPORT INFORMATION
  Report Type: 
  Country: None (occurrence: None)
  Receive Date: 20070223
  Receipt Date: 20070215
  Transmission Date: 20070707
  Serious: No
  Sender: FDA-Public Use
  Company Number: 2007-154710-NL

PATIENT

DRUGS (4)
  1. VECURONIUM BROMIDE [Suspect]
  2. PROPOFOL [Concomitant]
  3. FENTANYL [Concomitant]
  4. ROPIVACINE HYDROCHLORIDE [Concomitant]

REACTIONS (4)
  - BRADYCARDIA FOETAL [None]
  - DRUG EXPOSURE DURING PREGNANCY [None]
  - TOCOLYSIS [None]
  - UTERINE HYPERTONUS [None]
